FAERS Safety Report 6725220-2 (Version None)
Quarter: 2010Q2

REPORT INFORMATION
  Report Type: 
  Country: None (occurrence: None)
  Receive Date: 20100514
  Receipt Date: 20100513
  Transmission Date: 20101027
  Serious: Yes (Death, Hospitalization, Other)
  Sender: FDA-Public Use
  Company Number: PHHO2008ES13937

PATIENT
  Sex: Male

DRUGS (5)
  1. SANDIMMUNE [Suspect]
     Indication: HEART TRANSPLANT
     Dosage: 125 MG, DAILY
     Route: 048
     Dates: start: 20070220
  2. MYCOPHENOLATE MOFETIL [Suspect]
     Indication: HEART TRANSPLANT
     Dosage: 1000 MG, DAILY
     Route: 048
     Dates: start: 20040401, end: 20081117
  3. MYCOPHENOLATE MOFETIL [Suspect]
     Dosage: NO TREATMENT
     Dates: start: 20081118
  4. EVEROLIMUS [Concomitant]
  5. PREDNISONE [Concomitant]

REACTIONS (15)
  - ABNORMAL WEIGHT GAIN [None]
  - ANURIA [None]
  - BACK PAIN [None]
  - BLOOD CREATININE INCREASED [None]
  - BLOOD POTASSIUM INCREASED [None]
  - CARDIAC FAILURE ACUTE [None]
  - CARDIO-RESPIRATORY ARREST [None]
  - COLITIS ISCHAEMIC [None]
  - CONCOMITANT DISEASE PROGRESSION [None]
  - DIARRHOEA [None]
  - DYSPNOEA [None]
  - NECK PAIN [None]
  - OEDEMA PERIPHERAL [None]
  - OLIGURIA [None]
  - RENAL IMPAIRMENT [None]
